FAERS Safety Report 8190922-0 (Version None)
Quarter: 2012Q1

REPORT INFORMATION
  Report Type: 
  Country: None (occurrence: None)
  Receive Date: 20120307
  Receipt Date: 20120301
  Transmission Date: 20120608
  Serious: Yes (Hospitalization, Other)
  Sender: FDA-Public Use
  Company Number: US-BAYER-200941061NA

PATIENT
  Age: 19 Year
  Sex: Female
  Weight: 81.633 kg

DRUGS (19)
  1. HYDROCODONE BITARTRATE [Concomitant]
  2. HYDROMORPHONE HCL [Concomitant]
     Indication: PAIN
     Dosage: UNK
     Dates: start: 20090301, end: 20090501
  3. PROMETHAZINE [Concomitant]
     Dosage: UNK
     Dates: start: 20051201, end: 20090301
  4. HYDROCODONE BITARTRATE AND ACETAMINOPHEN [Concomitant]
     Indication: PAIN
     Dosage: UNK
     Dates: start: 20081101, end: 20090601
  5. ZOLOFT [Concomitant]
     Dosage: 25 MG, QD
     Dates: start: 20090803
  6. ADDERALL 5 [Concomitant]
     Indication: ATTENTION DEFICIT/HYPERACTIVITY DISORDER
     Dosage: 10 MG, QD
     Dates: start: 20081001, end: 20100101
  7. LYRICA [Concomitant]
  8. LORTAB [Concomitant]
  9. ANTIBIOTICS [Concomitant]
  10. LOESTRIN FE 1/20 [Concomitant]
     Dosage: UNK
     Dates: start: 20090225
  11. LOESTRIN FE 1/20 [Concomitant]
     Dosage: UNK
     Dates: end: 20090223
  12. NAPROXEN [Concomitant]
  13. CLONAZEPAM [Concomitant]
     Indication: ANXIETY
     Dosage: UNK
     Dates: start: 20081001, end: 20090601
  14. DROSPIRENONE AND ETHINYL ESTRADIOL [Suspect]
     Dates: start: 20070101
  15. KLONOPIN [Concomitant]
     Dosage: 1 MG, QD
     Dates: start: 20090803
  16. ALPRAZOLAM [Concomitant]
     Indication: ANXIETY
     Dosage: UNK
     Dates: start: 20081001, end: 20090401
  17. SERTRALINE HYDROCHLORIDE [Concomitant]
     Dosage: UNK
     Dates: start: 20081001, end: 20090301
  18. YASMIN [Suspect]
     Indication: PRODUCT USED FOR UNKNOWN INDICATION
     Dates: start: 20070101
  19. XANAX [Concomitant]

REACTIONS (21)
  - TRAUMATIC LUNG INJURY [None]
  - PAIN [None]
  - VOMITING [None]
  - BACK PAIN [None]
  - DIARRHOEA [None]
  - PAIN IN EXTREMITY [None]
  - HYDRONEPHROSIS [None]
  - RENAL COLIC [None]
  - CHOLECYSTITIS CHRONIC [None]
  - MUSCLE SPASMS [None]
  - ABDOMINAL PAIN [None]
  - PYELONEPHRITIS [None]
  - GALLBLADDER INJURY [None]
  - NEPHROLITHIASIS [None]
  - RENAL FAILURE [None]
  - CALCULUS URETERIC [None]
  - PNEUMOTHORAX [None]
  - FLANK PAIN [None]
  - DIVERTICULUM [None]
  - HAEMATEMESIS [None]
  - NAUSEA [None]
